FAERS Safety Report 8521605-2 (Version None)
Quarter: 2012Q3

REPORT INFORMATION
  Report Type: 
  Country: None (occurrence: None)
  Receive Date: 20120719
  Receipt Date: 20120716
  Transmission Date: 20120928
  Serious: Yes (Death)
  Sender: FDA-Public Use
  Company Number: PHHY2012MX061336

PATIENT
  Sex: Female

DRUGS (6)
  1. GLIVETAL [Concomitant]
  2. TRANTEC [Concomitant]
  3. TENORMIN [Concomitant]
  4. ZOLEDRONOC ACID [Suspect]
     Indication: OSTEOPOROSIS
     Dosage: 5 MG/ 100 ML ONCE A YEAR
     Route: 042
  5. TRADOL ^LAKESIDE^ [Concomitant]
  6. TRIACORD [Concomitant]

REACTIONS (1)
  - DEATH [None]
